FAERS Safety Report 6196699-2 (Version None)
Quarter: 2009Q2

REPORT INFORMATION
  Report Type: 
  Country: None (occurrence: None)
  Receive Date: 20090518
  Receipt Date: 20090507
  Transmission Date: 20091009
  Serious: Yes (Hospitalization)
  Sender: FDA-Public Use
  Company Number: GXKR2009NL05544

PATIENT
  Age: 37 Year
  Sex: Male

DRUGS (1)
  1. METHADONE (NGX) (METHADONE) TABLET, 5MG [Suspect]
     Dosage: 15 DF, ORAL
     Route: 048

REACTIONS (10)
  - ACCIDENTAL OVERDOSE [None]
  - CONFUSIONAL STATE [None]
  - DEAFNESS NEUROSENSORY [None]
  - DEAFNESS TRANSITORY [None]
  - NAUSEA [None]
  - OTOTOXICITY [None]
  - RESPIRATORY RATE DECREASED [None]
  - SELF-MEDICATION [None]
  - SUDDEN HEARING LOSS [None]
  - TINNITUS [None]
